FAERS Safety Report 9908637 (Version 1)
Quarter: 2014Q1

REPORT INFORMATION
  Report Type: Spontaneous
  Country: US (occurrence: None)
  Receive Date: 20140214
  Receipt Date: 20140214
  Transmission Date: 20141002
  Serious: Yes (Hospitalization)
  Sender: FDA-Public Use
  Company Number: None

PATIENT
  Age: 96 Year
  Sex: Female
  Weight: 52.3 kg

DRUGS (9)
  1. BACTRIM DS [Suspect]
     Indication: CELLULITIS
     Dosage: RECENT
     Route: 048
  2. TYLENOL [Concomitant]
  3. SENOKOT [Concomitant]
  4. LOPERAMIDE [Concomitant]
  5. BACITRACIN [Concomitant]
  6. VIT D [Concomitant]
  7. DIPHENHYDRAMINE [Concomitant]
  8. PINK BISMUTH [Concomitant]
  9. SECURA [Concomitant]

REACTIONS (1)
  - Rash [None]
